FAERS Safety Report 20916052 (Version 1)
Quarter: 2022Q2

REPORT INFORMATION
  Report Type: Spontaneous
  Country: US (occurrence: US)
  Receive Date: 20220604
  Receipt Date: 20220604
  Transmission Date: 20220721
  Serious: No
  Sender: FDA-Public Use
  Company Number: US-SANOFI-01122858

PATIENT
  Age: 45 Year
  Sex: Female

DRUGS (1)
  1. DUPIXENT [Suspect]
     Active Substance: DUPILUMAB
     Indication: Nasal polyps
     Dosage: 300 MG
     Route: 058
     Dates: start: 202111

REACTIONS (5)
  - Neuralgia [Unknown]
  - Burning sensation [Unknown]
  - Paraesthesia [Unknown]
  - Meralgia paraesthetica [Unknown]
  - Product use in unapproved indication [Unknown]
